FAERS Safety Report 8169455-3 (Version None)
Quarter: 2012Q1

REPORT INFORMATION
  Report Type: 
  Country: None (occurrence: None)
  Receive Date: 20120228
  Receipt Date: 20120222
  Transmission Date: 20120608
  Serious: Yes (Other)
  Sender: FDA-Public Use
  Company Number: US-AMGEN-USASP2012002965

PATIENT
  Age: 19 Year
  Sex: Female
  Weight: 63.492 kg

DRUGS (1)
  1. ENBREL [Suspect]
     Indication: PSORIASIS
     Dosage: 50 MG, 2 TIMES/WK
     Route: 058
     Dates: start: 20071001

REACTIONS (6)
  - BENIGN HYDATIDIFORM MOLE [None]
  - PREGNANCY [None]
  - VAGINAL HAEMORRHAGE [None]
  - ABORTION SPONTANEOUS [None]
  - MATERNAL EXPOSURE DURING PREGNANCY [None]
  - VAGINAL DISCHARGE [None]
